FAERS Safety Report 11114563 (Version 3)
Quarter: 2015Q3

REPORT INFORMATION
  Report Type: Spontaneous
  Country: US (occurrence: US)
  Receive Date: 20150515
  Receipt Date: 20150715
  Transmission Date: 20151125
  Serious: Yes (Death)
  Sender: FDA-Public Use
  Company Number: US-UCBSA-2015015234

PATIENT
  Age: 62 Year
  Sex: Male
  Weight: 204 kg

DRUGS (1)
  1. KEPPRA [Suspect]
     Active Substance: LEVETIRACETAM
     Indication: SEIZURE
     Dosage: 500 MG/4 DAILY
     Dates: end: 20150314

REACTIONS (2)
  - Hypercapnia [Fatal]
  - Mental status changes [Unknown]

NARRATIVE: CASE EVENT DATE: 20150303
